FAERS Safety Report 9529319 (Version 2)
Quarter: 2013Q3

REPORT INFORMATION
  Report Type: Report from Study
  Country: US (occurrence: US)
  Receive Date: 20130917
  Receipt Date: 20130917
  Transmission Date: 20140515
  Serious: Yes (Hospitalization, Other)
  Sender: FDA-Public Use
  Company Number: US-ABBVIE-13P-163-1140554-00

PATIENT
  Sex: Male
  Weight: 80.81 kg

DRUGS (10)
  1. HUMIRA [Suspect]
     Indication: RHEUMATOID ARTHRITIS
     Route: 058
     Dates: start: 200201
  2. HUMIRA [Suspect]
     Indication: PSORIASIS
     Route: 058
     Dates: start: 20130818
  3. PAIN MEDICATION [Suspect]
     Indication: PAIN
  4. ATENOLOL [Concomitant]
     Indication: HYPERTENSION
  5. GLIPIZIDE [Concomitant]
     Indication: DIABETES MELLITUS
  6. TAMSULOSIN [Concomitant]
     Indication: PROSTATOMEGALY
  7. FOLIC ACID [Concomitant]
     Indication: RHEUMATOID ARTHRITIS
  8. CRESTOR [Concomitant]
     Indication: BLOOD CHOLESTEROL INCREASED
  9. PLAVIX [Concomitant]
     Indication: PRODUCT USED FOR UNKNOWN INDICATION
  10. MORPHINE [Concomitant]
     Indication: ARTHRALGIA

REACTIONS (18)
  - Osteoarthritis [Recovered/Resolved]
  - Procedural complication [Recovered/Resolved]
  - Infection [Recovered/Resolved]
  - Device related infection [Recovered/Resolved]
  - Arthralgia [Recovered/Resolved]
  - Blood test abnormal [Recovered/Resolved]
  - Device related infection [Unknown]
  - Rhabdomyolysis [Recovered/Resolved]
  - Overdose [Recovered/Resolved]
  - Withdrawal syndrome [Recovered/Resolved]
  - Chromaturia [Recovered/Resolved]
  - Fatigue [Recovered/Resolved]
  - Asthenia [Recovered/Resolved]
  - Pyrexia [Recovered/Resolved]
  - Chest pain [Recovered/Resolved]
  - Dyspnoea [Recovered/Resolved]
  - Feeling abnormal [Recovered/Resolved]
  - Muscle spasms [Recovered/Resolved]
